FAERS Safety Report 4477014-9 (Version None)
Quarter: 2004Q4

REPORT INFORMATION
  Report Type: 
  Country: None (occurrence: None)
  Receive Date: 20041018
  Receipt Date: 20041007
  Transmission Date: 20050328
  Serious: Yes (Death)
  Sender: FDA-Public Use
  Company Number: GB-ABBOTT-04P-167-0277143-00

PATIENT

DRUGS (1)
  1. SIBUTRAMINE [Suspect]
     Indication: OBESITY
     Dosage: NOT REPORTED

REACTIONS (1)
  - CARDIOVASCULAR DISORDER [None]
